FAERS Safety Report 19570794 (Version 11)
Quarter: 2021Q4

REPORT INFORMATION
  Report Type: Report from Study
  Country: CL (occurrence: None)
  Receive Date: 20210715
  Receipt Date: 20211105
  Transmission Date: 20220303
  Serious: Yes (Hospitalization)
  Sender: FDA-Public Use
  Company Number: CL-EISAI MEDICAL RESEARCH-EC-2021-096259

PATIENT
  Age: 66 Year
  Sex: Male
  Weight: 59 kg

DRUGS (19)
  1. LENVATINIB [Suspect]
     Active Substance: LENVATINIB
     Indication: Non-small cell lung cancer metastatic
     Route: 048
     Dates: start: 20210115, end: 20210627
  2. LENVATINIB [Suspect]
     Active Substance: LENVATINIB
     Dosage: 8 MILLIGRAM (REPORTED AS DOSE REDUCED)
     Route: 048
     Dates: start: 20210628
  3. PEMBROLIZUMAB [Suspect]
     Active Substance: PEMBROLIZUMAB
     Indication: Non-small cell lung cancer metastatic
     Route: 041
     Dates: start: 20210115, end: 20210520
  4. PEMBROLIZUMAB [Suspect]
     Active Substance: PEMBROLIZUMAB
     Route: 041
     Dates: start: 20210610, end: 20210610
  5. PEMBROLIZUMAB [Suspect]
     Active Substance: PEMBROLIZUMAB
     Route: 041
     Dates: start: 20210714
  6. PEMETREXED [Suspect]
     Active Substance: PEMETREXED
     Indication: Non-small cell lung cancer metastatic
     Route: 041
     Dates: start: 20210115, end: 20210520
  7. PEMETREXED [Suspect]
     Active Substance: PEMETREXED
     Route: 041
     Dates: start: 20210610, end: 20210610
  8. PEMETREXED [Suspect]
     Active Substance: PEMETREXED
     Route: 041
     Dates: start: 20210714
  9. CARBOPLATIN [Concomitant]
     Active Substance: CARBOPLATIN
     Indication: Non-small cell lung cancer metastatic
     Route: 041
     Dates: start: 20210115, end: 20210318
  10. OMEPRAZOLE [Concomitant]
     Active Substance: OMEPRAZOLE
     Dates: start: 20200930
  11. CELECOXIB [Concomitant]
     Active Substance: CELECOXIB
     Dates: start: 20200930
  12. VITAMINS NOS [Concomitant]
     Active Substance: VITAMINS
     Dates: start: 20210103
  13. NEUROBIONTA [Concomitant]
     Dates: start: 20210114
  14. FOLIC ACID [Concomitant]
     Active Substance: FOLIC ACID
     Dates: start: 20210114
  15. ACETAMINOPHEN [Concomitant]
     Active Substance: ACETAMINOPHEN
     Dates: start: 20210207
  16. TRAMADOL HYDROCHLORIDE [Concomitant]
     Active Substance: TRAMADOL HYDROCHLORIDE
     Dates: start: 20210207
  17. PREGABALIN [Concomitant]
     Active Substance: PREGABALIN
     Dates: start: 20210326
  18. EUTHYROX [Concomitant]
     Active Substance: LEVOTHYROXINE SODIUM
     Dates: start: 20210428
  19. LOPERAMIDE [Concomitant]
     Active Substance: LOPERAMIDE
     Dates: start: 20210502

REACTIONS (1)
  - Delirium [Recovered/Resolved]

NARRATIVE: CASE EVENT DATE: 20210627
